FAERS Safety Report 17939207 (Version 2)
Quarter: 2020Q3

REPORT INFORMATION
  Report Type: Report from Study
  Country: None (occurrence: US)
  Receive Date: 20200624
  Receipt Date: 20200806
  Transmission Date: 20201103
  Serious: Yes (Hospitalization, Other)
  Sender: FDA-Public Use
  Company Number: US-ABBVIE-20K-163-3452027-00

PATIENT
  Age: 67 Year
  Sex: Female

DRUGS (2)
  1. AMOXICILLIN. [Concomitant]
     Active Substance: AMOXICILLIN
     Indication: UPPER RESPIRATORY TRACT INFECTION
     Dates: start: 20200618
  2. HUMIRA [Suspect]
     Active Substance: ADALIMUMAB
     Indication: CROHN^S DISEASE
     Route: 058

REACTIONS (13)
  - Groin pain [Recovering/Resolving]
  - Bacterial infection [Recovering/Resolving]
  - Chest pain [Recovering/Resolving]
  - Illness [Not Recovered/Not Resolved]
  - Sinusitis [Recovering/Resolving]
  - Infection [Recovering/Resolving]
  - Deafness [Unknown]
  - Vomiting [Unknown]
  - Hypoacusis [Unknown]
  - Headache [Recovering/Resolving]
  - Crohn^s disease [Unknown]
  - Upper respiratory tract infection [Not Recovered/Not Resolved]
  - Unevaluable event [Unknown]

NARRATIVE: CASE EVENT DATE: 202001
